FAERS Safety Report 19901642 (Version 4)
Quarter: 2021Q4

REPORT INFORMATION
  Report Type: Report from Study
  Country: MX (occurrence: MX)
  Receive Date: 20210929
  Receipt Date: 20211211
  Transmission Date: 20220303
  Serious: Yes (Death)
  Sender: FDA-Public Use
  Company Number: MX-NOVARTISPH-NVSC2021MX220679

PATIENT
  Age: 54 Year
  Sex: Female
  Weight: 46 kg

DRUGS (1)
  1. EXFORGE HCT [Suspect]
     Active Substance: AMLODIPINE BESYLATE\HYDROCHLOROTHIAZIDE\VALSARTAN
     Indication: Hypertension
     Dosage: 1 DOSAGE FORM, BID (10/320/25 MG)
     Route: 048
     Dates: start: 2016

REACTIONS (2)
  - Death [Fatal]
  - Incorrect dose administered [Unknown]

NARRATIVE: CASE EVENT DATE: 20190202
